FAERS Safety Report 17192119 (Version 1)
Quarter: 2019Q4

REPORT INFORMATION
  Report Type: Spontaneous
  Country: US (occurrence: US)
  Receive Date: 20191223
  Receipt Date: 20191223
  Transmission Date: 20200122
  Serious: Yes (Other)
  Sender: FDA-Public Use
  Company Number: US-PFIZER INC-2019545977

PATIENT
  Sex: Male

DRUGS (2)
  1. CENTRUM SILVER [Suspect]
     Active Substance: MINERALS\VITAMINS
     Dosage: UNK
  2. FIBERCON [Suspect]
     Active Substance: CALCIUM POLYCARBOPHIL
     Dosage: UNK

REACTIONS (1)
  - Choking [Unknown]
